FAERS Safety Report 26180752 (Version 1)
Quarter: 2025Q4

REPORT INFORMATION
  Report Type: Spontaneous
  Country: US (occurrence: None)
  Receive Date: 20251219
  Receipt Date: 20251219
  Transmission Date: 20260117
  Serious: Yes (Hospitalization)
  Sender: FDA-CTU
  Company Number: None

PATIENT
  Sex: Female

DRUGS (4)
  1. VABYSMO [Suspect]
     Active Substance: FARICIMAB-SVOA
     Indication: Diabetic retinopathy
     Dosage: 0.05 ML EVERY 4 WEEKS  INTRAVITREALLY
     Route: 050
     Dates: start: 20240816
  2. VABYSMO [Suspect]
     Active Substance: FARICIMAB-SVOA
     Indication: Macular oedema
  3. EYLEA [Suspect]
     Active Substance: AFLIBERCEPT
  4. VABYSMO SYR [Concomitant]

REACTIONS (1)
  - Hospitalisation [None]
